FAERS Safety Report 4362276-9 (Version None)
Quarter: 2004Q2

REPORT INFORMATION
  Report Type: 
  Country: None (occurrence: None)
  Receive Date: 20040517
  Receipt Date: 20040506
  Transmission Date: 20050107
  Serious: Yes (Hospitalization)
  Sender: FDA-Public Use
  Company Number: US-JNJFOC-20040501465

PATIENT
  Age: 75 Year
  Sex: Female

DRUGS (9)
  1. DURAGESIC [Suspect]
     Indication: CANCER PAIN
     Dosage: 50 UG/HR, TRANSDERMAL
     Route: 062
     Dates: start: 20040301, end: 20040401
  2. ALBUTEROL [Concomitant]
  3. LIPITOR [Concomitant]
  4. PROZAC [Concomitant]
  5. FLOVENT [Concomitant]
  6. COMBIVENT [Concomitant]
  7. CARBIDOPA-LEVODOPA (CARBIDOPA) [Concomitant]
  8. HYDROCHLORATHIAZIDE (HYDROCHLOROTHIAZIDE) [Concomitant]
  9. FUROSEMIDE [Concomitant]

REACTIONS (1)
  - PNEUMONIA [None]
